FAERS Safety Report 25182441 (Version 1)
Quarter: 2025Q2

REPORT INFORMATION
  Report Type: Spontaneous
  Country: US (occurrence: US)
  Receive Date: 20250410
  Receipt Date: 20250410
  Transmission Date: 20250716
  Serious: No
  Sender: KINIKSA PHARMACEUTICALS
  Company Number: US-Kiniksa Pharmaceuticals Ltd.-2024KPU002532

PATIENT
  Age: 49 Year
  Sex: Female

DRUGS (5)
  1. ARCALYST [Suspect]
     Active Substance: RILONACEPT
     Indication: Pericarditis
     Route: 058
     Dates: start: 202405
  2. ARCALYST [Suspect]
     Active Substance: RILONACEPT
     Indication: Pericarditis
  3. MIRAPEX [Concomitant]
     Active Substance: PRAMIPEXOLE DIHYDROCHLORIDE
     Indication: Product used for unknown indication
  4. HORIZANT [Concomitant]
     Active Substance: GABAPENTIN ENACARBIL
     Indication: Product used for unknown indication
  5. STERILE WATER [Concomitant]
     Active Substance: WATER
     Indication: Product used for unknown indication

REACTIONS (15)
  - Neuropathy peripheral [Not Recovered/Not Resolved]
  - Sleep apnoea syndrome [Unknown]
  - Restless legs syndrome [Unknown]
  - Paraesthesia [Recovering/Resolving]
  - Adverse drug reaction [Recovering/Resolving]
  - Urticaria [Recovering/Resolving]
  - Product complaint [Unknown]
  - Product label issue [Unknown]
  - Cardiac pacemaker insertion [Unknown]
  - Gene mutation [Unknown]
  - Superior vena cava syndrome [Unknown]
  - Fear [Unknown]
  - Condition aggravated [Unknown]
  - Hypoaesthesia [Recovering/Resolving]
  - Arthralgia [Recovering/Resolving]

NARRATIVE: CASE EVENT DATE: 20241201
